FAERS Safety Report 9072036 (Version 1)
Quarter: 2013Q1

REPORT INFORMATION
  Report Type: Spontaneous
  Country: US (occurrence: US)
  Receive Date: 20130206
  Receipt Date: 20130206
  Transmission Date: 20140127
  Serious: No
  Sender: FDA-Public Use
  Company Number: US-ALLERGAN-1215338US

PATIENT
  Age: 66 Year
  Sex: Female

DRUGS (7)
  1. RESTASIS? [Suspect]
     Indication: SJOGREN^S SYNDROME
     Dosage: 2 GTT, BID
     Route: 047
     Dates: start: 2012
  2. ANTIBACTERIAL [Suspect]
     Indication: EYE IRRITATION
     Dosage: UNK
     Dates: start: 2012
  3. ORENCIA [Concomitant]
     Indication: RHEUMATOID ARTHRITIS
     Dosage: UNK UNK, Q WEEK
     Dates: start: 201209
  4. PREDNISONE [Concomitant]
     Indication: RHEUMATOID ARTHRITIS
     Dosage: UNK UNK, QD
     Route: 048
     Dates: start: 1991
  5. MOBIC [Concomitant]
     Indication: RHEUMATOID ARTHRITIS
     Dosage: UNK UNK, QD
     Route: 048
     Dates: start: 1991
  6. THERATEARS                         /00007001/ [Concomitant]
     Indication: DRY EYE
     Dosage: 2 GTT, PRN
     Route: 047
  7. PRILOSEC                           /00661201/ [Concomitant]
     Indication: GASTRIC DISORDER
     Dosage: UNK UNK, QD
     Route: 048

REACTIONS (8)
  - Vascular rupture [Recovered/Resolved]
  - Eye haemorrhage [Recovered/Resolved]
  - Lacrimation increased [Recovered/Resolved]
  - Eye pain [Recovered/Resolved]
  - Eye irritation [Recovered/Resolved]
  - Eye discharge [Recovered/Resolved]
  - Eye discharge [Recovered/Resolved]
  - Ocular hyperaemia [Recovered/Resolved]
